FAERS Safety Report 11351003 (Version 1)
Quarter: 2015Q3

REPORT INFORMATION
  Report Type: Spontaneous
  Country: US (occurrence: US)
  Receive Date: 20150807
  Receipt Date: 20150807
  Transmission Date: 20151125
  Serious: No
  Sender: FDA-Public Use
  Company Number: US-JNJFOC-20141212738

PATIENT
  Age: 38 Year
  Sex: Female
  Weight: 65.77 kg

DRUGS (4)
  1. MENS ROGAINE EXTRA STRENGTH [Suspect]
     Active Substance: MINOXIDIL
     Indication: ALOPECIA
     Route: 061
  2. NASAL SPRAY (NOS) [Concomitant]
     Indication: MULTIPLE ALLERGIES
     Route: 065
  3. MENS ROGAINE EXTRA STRENGTH [Suspect]
     Active Substance: MINOXIDIL
     Route: 061
  4. NASAL SPRAY (NOS) [Concomitant]
     Indication: MULTIPLE ALLERGIES
     Route: 065

REACTIONS (4)
  - Wrong patient received medication [Unknown]
  - Hair growth abnormal [Unknown]
  - Therapeutic response unexpected [Unknown]
  - Product use issue [Unknown]
